FAERS Safety Report 7182124-1 (Version None)
Quarter: 2010Q4

REPORT INFORMATION
  Report Type: 
  Country: None (occurrence: None)
  Receive Date: 20101221
  Receipt Date: 20100506
  Transmission Date: 20110411
  Serious: Yes (Other)
  Sender: FDA-Public Use
  Company Number: US-AMGEN-KDL411079

PATIENT

DRUGS (3)
  1. ENBREL [Suspect]
     Indication: RHEUMATOID ARTHRITIS
     Dosage: 50 MG, QWK
     Route: 058
     Dates: start: 20091020
  2. HYDROXYCHLOROQUINE [Concomitant]
     Dosage: UNK UNK, UNK
  3. METHOTREXATE [Concomitant]
     Dosage: UNK UNK, UNK

REACTIONS (12)
  - ABDOMINAL DISCOMFORT [None]
  - ANAEMIA [None]
  - FAECES DISCOLOURED [None]
  - FEAR OF NEEDLES [None]
  - HAEMATEMESIS [None]
  - INJECTION SITE PAIN [None]
  - JOINT SWELLING [None]
  - MIGRAINE [None]
  - MUSCLE SPASMS [None]
  - OEDEMA PERIPHERAL [None]
  - RHEUMATOID ARTHRITIS [None]
  - VISION BLURRED [None]
